FAERS Safety Report 6811503-4 (Version None)
Quarter: 2010Q2

REPORT INFORMATION
  Report Type: 
  Country: None (occurrence: None)
  Receive Date: 20100625
  Receipt Date: 20100609
  Transmission Date: 20101027
  Serious: Yes (Hospitalization)
  Sender: FDA-Public Use
  Company Number: THQ2010A01631

PATIENT
  Age: 65 Year
  Sex: Female

DRUGS (2)
  1. LANSOPRAZOLE [Suspect]
     Dosage: 30 MG (30 MG,ONCE), PER ORAL
     Route: 048
     Dates: start: 20100526, end: 20100526
  2. ALMAX FORTE SUSPENSION ORAL EN SOBRES (ALMAGATE) [Concomitant]

REACTIONS (3)
  - ANAPHYLACTIC SHOCK [None]
  - LOSS OF CONSCIOUSNESS [None]
  - RESPIRATORY FAILURE [None]
